FAERS Safety Report 4850174-3 (Version None)
Quarter: 2005Q4

REPORT INFORMATION
  Report Type: 
  Country: None (occurrence: None)
  Receive Date: 20051123
  Receipt Date: 20050419
  Transmission Date: 20060501
  Serious: Yes (Life-Threatening)
  Sender: FDA-Public Use
  Company Number: 2005063512

PATIENT
  Age: 35 Year
  Sex: Male

DRUGS (6)
  1. LIPITOR [Suspect]
     Indication: ILL-DEFINED DISORDER
     Dates: start: 20040115, end: 20050224
  2. EFAVIRENZ [Suspect]
     Indication: HIV INFECTION
     Dosage: 600 MG (600 MG, 1 IN 1 D), ORAL
     Route: 048
     Dates: start: 20030609
  3. KALETRA [Suspect]
     Indication: HIV INFECTION
     Dosage: 1332 MG (666 MG, 2 IN 1 D), ORAL
     Route: 048
     Dates: start: 20030609
  4. ACYCLOVIR [Concomitant]
  5. FAMOTIDINE [Concomitant]
  6. PANCRELIPASE (PANCRELIPASE) [Concomitant]

REACTIONS (2)
  - ALANINE AMINOTRANSFERASE INCREASED [None]
  - BLOOD CREATINE PHOSPHOKINASE INCREASED [None]
